FAERS Safety Report 4390315-8 (Version None)
Quarter: 2004Q2

REPORT INFORMATION
  Report Type: 
  Country: None (occurrence: None)
  Receive Date: 20040628
  Receipt Date: 20040614
  Transmission Date: 20050107
  Serious: Yes (Hospitalization)
  Sender: FDA-Public Use
  Company Number: 03P-163-0245647-00

PATIENT
  Age: 67 Year
  Sex: Female

DRUGS (4)
  1. DILAUDID [Suspect]
     Dosage: AS REQUIRED
     Dates: start: 20031020, end: 20031026
  2. DILAUDID [Suspect]
     Dosage: AS REQUIRED
     Dates: start: 20031027, end: 20031031
  3. PROTONIX [Suspect]
     Dosage: SEE IMAGE
     Route: 042
     Dates: start: 20031021, end: 20031107
  4. PROTONIX [Suspect]
     Dosage: SEE IMAGE
     Route: 042
     Dates: start: 20031021, end: 20031107

REACTIONS (12)
  - CONVULSION [None]
  - DELIRIUM [None]
  - DISORIENTATION [None]
  - DYSARTHRIA [None]
  - DYSKINESIA [None]
  - HALLUCINATION, TACTILE [None]
  - HALLUCINATION, VISUAL [None]
  - HYPERKINESIA [None]
  - HYPERTENSION [None]
  - HYPERTONIA [None]
  - ILEUS [None]
  - INSOMNIA [None]
